FAERS Safety Report 21689434 (Version 1)
Quarter: 2022Q4

REPORT INFORMATION
  Report Type: Report from Study
  Country: CA (occurrence: CA)
  Receive Date: 20221206
  Receipt Date: 20221206
  Transmission Date: 20230113
  Serious: Yes (Other)
  Sender: FDA-Public Use
  Company Number: CA-AMGEN-CANSL2022138035

PATIENT
  Age: 64 Year
  Sex: Male
  Weight: 92.5 kg

DRUGS (5)
  1. MVASI [Suspect]
     Active Substance: BEVACIZUMAB-AWWB
     Indication: Glioblastoma
     Dosage: 400 MILLIGRAM, Q3WK
     Route: 040
     Dates: start: 20220823, end: 20221123
  2. MVASI [Suspect]
     Active Substance: BEVACIZUMAB-AWWB
     Dosage: 100 MILLIGRAM, Q3WK
     Route: 040
  3. MVASI [Suspect]
     Active Substance: BEVACIZUMAB-AWWB
     Dosage: 500 MILLIGRAM, Q3WK
     Route: 040
  4. MVASI [Suspect]
     Active Substance: BEVACIZUMAB-AWWB
     Dosage: 400 MILLIGRAM, Q3WK
     Route: 040
     Dates: start: 20221115
  5. MVASI [Suspect]
     Active Substance: BEVACIZUMAB-AWWB
     Dosage: 100 MILLIGRAM, Q3WK
     Route: 040
     Dates: start: 20221115

REACTIONS (3)
  - Glioblastoma [Unknown]
  - Off label use [Unknown]
  - Fatigue [Not Recovered/Not Resolved]

NARRATIVE: CASE EVENT DATE: 20220101
